FAERS Safety Report 13708587 (Version 1)
Quarter: 2017Q2

REPORT INFORMATION
  Report Type: Spontaneous
  Country: US (occurrence: US)
  Receive Date: 20170630
  Receipt Date: 20170630
  Transmission Date: 20170830
  Serious: No
  Sender: FDA-Public Use
  Company Number: US-SUNOVION-2017SUN000456

PATIENT
  Sex: Male

DRUGS (4)
  1. FORADIL [Concomitant]
     Active Substance: FORMOTEROL FUMARATE
  2. SYMBICORT [Suspect]
     Active Substance: BUDESONIDE\FORMOTEROL FUMARATE DIHYDRATE
  3. ALBUTEROL. [Concomitant]
     Active Substance: ALBUTEROL
  4. ARCAPTA NEOHALER [Suspect]
     Active Substance: INDACATEROL MALEATE
     Dosage: 75 ?G, QD
     Route: 048

REACTIONS (3)
  - Drug ineffective [Unknown]
  - Heart rate increased [Unknown]
  - Dyspnoea [Unknown]
